FAERS Safety Report 18995658 (Version 2)
Quarter: 2021Q2

REPORT INFORMATION
  Report Type: Report from Study
  Country: None (occurrence: US)
  Receive Date: 20210310
  Receipt Date: 20210409
  Transmission Date: 20210717
  Serious: Yes (Other)
  Sender: FDA-Public Use
  Company Number: US-ABBVIE-20K-163-3508255-00

PATIENT
  Sex: Female

DRUGS (1)
  1. HUMIRA [Suspect]
     Active Substance: ADALIMUMAB
     Indication: RHEUMATOID ARTHRITIS
     Dosage: CITRATE FREE
     Route: 058

REACTIONS (7)
  - Back pain [Unknown]
  - Spinal cord compression [Unknown]
  - Hypoaesthesia [Unknown]
  - Spinal fusion surgery [Unknown]
  - Dental caries [Unknown]
  - Nephrolithiasis [Unknown]
  - Toothache [Unknown]

NARRATIVE: CASE EVENT DATE: 2011
